FAERS Safety Report 12947693 (Version 1)
Quarter: 2016Q4

REPORT INFORMATION
  Report Type: Spontaneous
  Country: US (occurrence: US)
  Receive Date: 20161116
  Receipt Date: 20161116
  Transmission Date: 20170207
  Serious: Yes (Other)
  Sender: FDA-Public Use
  Company Number: US-NEOS THERAPEUTICS, LP-2016NEO00053

PATIENT
  Age: 7 Year
  Sex: Female

DRUGS (1)
  1. ADZENYS XR-ODT [Suspect]
     Active Substance: AMPHETAMINE
     Indication: ATTENTION DEFICIT/HYPERACTIVITY DISORDER
     Dosage: 6.3 MG, 1X/DAY
     Route: 048
     Dates: start: 201610, end: 201610

REACTIONS (3)
  - Intentional self-injury [Recovered/Resolved]
  - Aggression [Recovering/Resolving]
  - Hostility [Recovering/Resolving]

NARRATIVE: CASE EVENT DATE: 201610
